FAERS Safety Report 9629910 (Version 1)
Quarter: 2013Q4

REPORT INFORMATION
  Report Type: Spontaneous
  Country: IT (occurrence: IT)
  Receive Date: 20131017
  Receipt Date: 20131017
  Transmission Date: 20140711
  Serious: Yes (Other)
  Sender: FDA-Public Use
  Company Number: IT-SHIRE-ALL1-2013-07003

PATIENT
  Age: 44 Year
  Sex: Female

DRUGS (1)
  1. 426 (MIDODRINE) [Suspect]
     Dosage: 3.75 MG (15 ML), 1X/DAY:QD
     Route: 048
     Dates: start: 20130712

REACTIONS (5)
  - Bradycardia [Recovering/Resolving]
  - Abdominal pain upper [Recovering/Resolving]
  - Headache [Recovering/Resolving]
  - Vomiting [Recovering/Resolving]
  - Toxicity to various agents [Recovering/Resolving]
